FAERS Safety Report 26209265 (Version 1)
Quarter: 2025Q4

REPORT INFORMATION
  Report Type: Report from Study
  Country: JP (occurrence: JP)
  Receive Date: 20251229
  Receipt Date: 20251229
  Transmission Date: 20260117
  Serious: Yes (Death, Hospitalization, Other)
  Sender: ALEXION PHARMACEUTICALS
  Company Number: JP-ASTRAZENECA-202512JPN023264JP

PATIENT
  Age: 73 Year
  Sex: Male
  Weight: 65 kg

DRUGS (1)
  1. DURVALUMAB [Suspect]
     Active Substance: DURVALUMAB
     Indication: Gallbladder cancer
     Dosage: UNK
     Route: 065
     Dates: start: 20230310, end: 20240617

REACTIONS (3)
  - Interstitial lung disease [Unknown]
  - Cholangitis [Unknown]
  - Death [Fatal]

NARRATIVE: CASE EVENT DATE: 20241210
